FAERS Safety Report 17561850 (Version 1)
Quarter: 2020Q1

REPORT INFORMATION
  Report Type: Spontaneous
  Country: US (occurrence: US)
  Receive Date: 20200319
  Receipt Date: 20200319
  Transmission Date: 20200409
  Serious: Yes (Other)
  Sender: FDA-Public Use
  Company Number: US-ROCHE-2566356

PATIENT
  Age: 73 Year
  Sex: Male
  Weight: 76.73 kg

DRUGS (1)
  1. OCREVUS [Suspect]
     Active Substance: OCRELIZUMAB
     Indication: PRIMARY PROGRESSIVE MULTIPLE SCLEROSIS
     Route: 042
     Dates: start: 201709, end: 201809

REACTIONS (4)
  - Cellulitis [Recovered/Resolved]
  - Vocal cord disorder [Not Recovered/Not Resolved]
  - Fungal infection [Recovered/Resolved]
  - Skin irritation [Unknown]

NARRATIVE: CASE EVENT DATE: 201806
